FAERS Safety Report 5220972-5 (Version None)
Quarter: 2007Q1

REPORT INFORMATION
  Report Type: 
  Country: None (occurrence: None)
  Receive Date: 20070124
  Receipt Date: 20061207
  Transmission Date: 20070707
  Serious: Yes (Hospitalization)
  Sender: FDA-Public Use
  Company Number: DL2006499

PATIENT
  Age: 24 Year
  Sex: Female

DRUGS (2)
  1. MIFEPRISTONE TABLETS, 200 MG (DANCO LABS) [Suspect]
     Indication: ABORTION INDUCED
     Dosage: 200 MG ORAL
     Route: 048
     Dates: start: 20061007
  2. MISOPROSTOL [Suspect]
     Dosage: 800 MCG ORAL
     Route: 048
     Dates: start: 20061008

REACTIONS (3)
  - ABORTION INCOMPLETE [None]
  - MENORRHAGIA [None]
  - URINARY TRACT INFECTION [None]
